FAERS Safety Report 9295506 (Version 1)
Quarter: 2013Q2

REPORT INFORMATION
  Report Type: Spontaneous
  Country: US (occurrence: US)
  Receive Date: 20130517
  Receipt Date: 20130517
  Transmission Date: 20140414
  Serious: No
  Sender: FDA-Public Use
  Company Number: US-BANPHARM-20120364

PATIENT
  Age: 58 Year
  Sex: Female
  Weight: 62.14 kg

DRUGS (5)
  1. IBUPROFEN CAPSULES 200 MG [Suspect]
     Indication: PAIN
     Dosage: 2 DF, Q4H,
     Route: 048
     Dates: start: 20121002, end: 20121006
  2. TEMAZEPAM [Concomitant]
  3. CALCIUM WITH VITAMIN D [Concomitant]
  4. LORAZEPAM [Concomitant]
  5. TOPIRAMATE [Concomitant]

REACTIONS (1)
  - Drug ineffective [Recovering/Resolving]
